FAERS Safety Report 24080706 (Version 2)
Quarter: 2024Q3

REPORT INFORMATION
  Report Type: Spontaneous
  Country: GB (occurrence: GB)
  Receive Date: 20240711
  Receipt Date: 20240722
  Transmission Date: 20241017
  Serious: Yes (Life-Threatening, Hospitalization, Other)
  Sender: CIPLA
  Company Number: GB-MHRA-MED-202406281144360370-LSKWG

PATIENT

DRUGS (1)
  1. FINASTERIDE [Suspect]
     Active Substance: FINASTERIDE
     Indication: Product used for unknown indication
     Dosage: UNK
     Route: 065

REACTIONS (5)
  - Muscle atrophy [Not Recovered/Not Resolved]
  - Insomnia [Not Recovered/Not Resolved]
  - Brain fog [Not Recovered/Not Resolved]
  - Vision blurred [Not Recovered/Not Resolved]
  - Erectile dysfunction [Unknown]
